FAERS Safety Report 17125810 (Version 1)
Quarter: 2019Q4

REPORT INFORMATION
  Report Type: Spontaneous
  Country: CA (occurrence: CA)
  Receive Date: 20191208
  Receipt Date: 20191208
  Transmission Date: 20200122
  Serious: Yes (Other)
  Sender: FDA-Public Use
  Company Number: CA-CELLTRION INC.-2019CA027131

PATIENT

DRUGS (2)
  1. ROFACT [RIFAMPICIN] [Suspect]
     Active Substance: RIFAMPIN
     Dosage: 150 MG, UNK
     Route: 065
  2. INFLIXIMAB PFIZER (UNKNOWN) [Suspect]
     Active Substance: INFLIXIMAB
     Indication: CROHN^S DISEASE
     Dosage: 675 MG, UNK
     Route: 042

REACTIONS (1)
  - Blood pressure increased [Unknown]
